FAERS Safety Report 18348642 (Version 1)
Quarter: 2020Q4

REPORT INFORMATION
  Report Type: Report from Study
  Country: AU (occurrence: AU)
  Receive Date: 20201006
  Receipt Date: 20201006
  Transmission Date: 20210114
  Serious: Yes (Other)
  Sender: FDA-Public Use
  Company Number: AU-PFIZER INC-2020377480

PATIENT

DRUGS (4)
  1. ETOPOSIDE. [Suspect]
     Active Substance: ETOPOSIDE
     Dosage: 100 MG/M2, CYCLIC (DAILY FOR DAYS 1-3 OVER 30 MIN)
     Route: 042
  2. IFOSFAMIDE. [Suspect]
     Active Substance: IFOSFAMIDE
     Dosage: 5000 MG/M2, CYCLIC (IN THREE EQUALLY DIVIDED DOSES)
     Route: 042
  3. MESNA. [Concomitant]
     Active Substance: MESNA
     Dosage: UNK, CYCLIC (OVER 2 HOURS DAILY FOR 3 CONSECUTIVE DAYS)
     Route: 042
  4. CARBOPLATIN. [Suspect]
     Active Substance: CARBOPLATIN
     Dosage: UNK, CYCLIC (5 X AREA UNDER THE CURVE (AUC) ON DAY 1 (MAX. 800 MG) AS A 1 L I.V. INFUSION OVER 1 H)
     Route: 042

REACTIONS (2)
  - Cardiotoxicity [Unknown]
  - Neurotoxicity [Unknown]
